FAERS Safety Report 19716931 (Version 3)
Quarter: 2021Q4

REPORT INFORMATION
  Report Type: Spontaneous
  Country: SE (occurrence: None)
  Receive Date: 20210818
  Receipt Date: 20211129
  Transmission Date: 20220303
  Serious: Yes (Death, Life-Threatening, Hospitalization, Other)
  Sender: FDA-Public Use
  Company Number: SE-ACCORD-234042

PATIENT
  Age: 68 Year
  Sex: Female
  Weight: 75.1 kg

DRUGS (49)
  1. GEMCITABINE [Suspect]
     Active Substance: GEMCITABINE
     Indication: Diffuse large B-cell lymphoma stage IV
     Dosage: 1830 MILLIGRAM, SINGLE
     Route: 042
     Dates: start: 20210223, end: 20210223
  2. GEMCITABINE [Suspect]
     Active Substance: GEMCITABINE
     Dosage: 1810 MILLIGRAM, SINGLE
     Route: 042
     Dates: start: 20210413, end: 20210413
  3. GEMCITABINE [Suspect]
     Active Substance: GEMCITABINE
     Dosage: 1820 MILLIGRAM, SINGLE
     Route: 042
     Dates: start: 20210312, end: 20210312
  4. GEMCITABINE [Suspect]
     Active Substance: GEMCITABINE
     Dosage: 1870 MILLIGRAM, SINGLE
     Route: 042
     Dates: start: 20210202, end: 20210202
  5. GEMCITABINE [Suspect]
     Active Substance: GEMCITABINE
     Dosage: 1820 MILLIGRAM, SINGLE
     Route: 042
     Dates: start: 20210429, end: 20210429
  6. GEMCITABINE [Suspect]
     Active Substance: GEMCITABINE
     Dosage: 1820 MILLIGRAM, SINGLE
     Route: 042
     Dates: start: 20210531, end: 20210531
  7. GEMCITABINE [Suspect]
     Active Substance: GEMCITABINE
     Dosage: 1820 MILLIGRAM, SINGLE
     Route: 042
     Dates: start: 20210517, end: 20210517
  8. GEMCITABINE [Suspect]
     Active Substance: GEMCITABINE
     Dosage: 1810 MILLIGRAM, SINGLE
     Route: 042
     Dates: start: 20210326, end: 20210326
  9. GEMCITABINE [Suspect]
     Active Substance: GEMCITABINE
     Dosage: 1Q2W
     Route: 042
     Dates: start: 20210608, end: 20210706
  10. OXALIPLATIN [Suspect]
     Active Substance: OXALIPLATIN
     Indication: Diffuse large B-cell lymphoma stage IV
     Dosage: 183 MILLIGRAM, SINGLE
     Route: 042
     Dates: start: 20210223, end: 20210223
  11. OXALIPLATIN [Suspect]
     Active Substance: OXALIPLATIN
     Dosage: 182 MILLIGRAM, SINGLE
     Route: 042
     Dates: start: 20210429, end: 20210429
  12. OXALIPLATIN [Suspect]
     Active Substance: OXALIPLATIN
     Dosage: 182 MILLIGRAM, SINGLE
     Route: 042
     Dates: start: 20210517, end: 20210517
  13. OXALIPLATIN [Suspect]
     Active Substance: OXALIPLATIN
     Dosage: 181 MILLIGRAM, SINGLE
     Route: 042
     Dates: start: 20210326, end: 20210326
  14. OXALIPLATIN [Suspect]
     Active Substance: OXALIPLATIN
     Dosage: 182 MILLIGRAM, SINGLE
     Route: 042
     Dates: start: 20210531, end: 20210531
  15. OXALIPLATIN [Suspect]
     Active Substance: OXALIPLATIN
     Dosage: 181 MILLIGRAM, SINGLE
     Route: 042
     Dates: start: 20210413, end: 20210413
  16. OXALIPLATIN [Suspect]
     Active Substance: OXALIPLATIN
     Dosage: 187 MILLIGRAM, SINGLE
     Route: 042
     Dates: start: 20210202, end: 20210202
  17. OXALIPLATIN [Suspect]
     Active Substance: OXALIPLATIN
     Dosage: 182 MILLIGRAM, SINGLE
     Route: 042
     Dates: start: 20210312, end: 20210312
  18. OXALIPLATIN [Suspect]
     Active Substance: OXALIPLATIN
     Dosage: 1Q2W
     Route: 042
     Dates: start: 20210608, end: 20210706
  19. METHYLPREDNISOLONE SODIUM SUCCINATE [Concomitant]
     Active Substance: METHYLPREDNISOLONE SODIUM SUCCINATE
     Indication: Product used for unknown indication
     Route: 065
     Dates: start: 20210319
  20. PANTOPRAZOLE [Concomitant]
     Active Substance: PANTOPRAZOLE
     Indication: Product used for unknown indication
     Route: 065
     Dates: start: 20200511, end: 20210704
  21. PREDNISOLONE [Concomitant]
     Active Substance: PREDNISOLONE
     Indication: Product used for unknown indication
     Route: 065
     Dates: start: 20210514, end: 20210531
  22. ACYCLOVIR [Concomitant]
     Active Substance: ACYCLOVIR
     Indication: Product used for unknown indication
     Route: 065
     Dates: start: 20210215, end: 20210624
  23. ACYCLOVIR [Concomitant]
     Active Substance: ACYCLOVIR
     Route: 065
     Dates: start: 20200916
  24. CALCIUM CARBONATE [Concomitant]
     Active Substance: CALCIUM CARBONATE
     Indication: Product used for unknown indication
     Route: 065
     Dates: start: 20200402, end: 20210702
  25. ALLOPURINOL [Concomitant]
     Active Substance: ALLOPURINOL
     Indication: Product used for unknown indication
     Route: 065
     Dates: start: 20210517, end: 20210517
  26. CALCIUM CHLORIDE [Concomitant]
     Active Substance: CALCIUM CHLORIDE
     Indication: Product used for unknown indication
     Route: 065
     Dates: start: 20210608, end: 20210614
  27. CALCIUM CHLORIDE [Concomitant]
     Active Substance: CALCIUM CHLORIDE
     Route: 065
     Dates: start: 20210706, end: 20210707
  28. ONDANSETRON [Concomitant]
     Active Substance: ONDANSETRON
     Indication: Product used for unknown indication
     Route: 065
     Dates: start: 20210517, end: 20210517
  29. ATENOLOL [Concomitant]
     Active Substance: ATENOLOL
     Indication: Product used for unknown indication
     Route: 065
     Dates: start: 20210616, end: 20210704
  30. ACETAMINOPHEN [Concomitant]
     Active Substance: ACETAMINOPHEN
     Indication: Product used for unknown indication
     Route: 065
     Dates: start: 20210514, end: 20210624
  31. ACETAMINOPHEN [Concomitant]
     Active Substance: ACETAMINOPHEN
     Route: 065
     Dates: start: 20210713, end: 20210713
  32. PEGFILGRASTIM [Concomitant]
     Active Substance: PEGFILGRASTIM
     Indication: Product used for unknown indication
     Route: 065
     Dates: start: 20210520, end: 20210520
  33. CALCIUM POLYSTYRENE SULFONATE [Concomitant]
     Active Substance: CALCIUM POLYSTYRENE SULFONATE
     Indication: Product used for unknown indication
     Route: 065
     Dates: start: 20210701, end: 20210704
  34. CETIRIZINE HYDROCHLORIDE [Concomitant]
     Active Substance: CETIRIZINE HYDROCHLORIDE
     Indication: Product used for unknown indication
     Route: 065
     Dates: start: 20210514, end: 20210531
  35. CETIRIZINE HYDROCHLORIDE [Concomitant]
     Active Substance: CETIRIZINE HYDROCHLORIDE
     Route: 065
     Dates: start: 20210713, end: 20210713
  36. FIBRINOGEN HUMAN [Concomitant]
     Active Substance: FIBRINOGEN HUMAN
     Indication: Product used for unknown indication
     Route: 065
     Dates: start: 20210707, end: 20210707
  37. SPIRONOLACTONE [Concomitant]
     Active Substance: SPIRONOLACTONE
     Indication: Product used for unknown indication
     Route: 065
     Dates: start: 20210618, end: 20210630
  38. ZOPICLONE [Concomitant]
     Active Substance: ZOPICLONE
     Indication: Product used for unknown indication
     Route: 065
     Dates: start: 20200318, end: 20210704
  39. FUROSEMIDE [Concomitant]
     Active Substance: FUROSEMIDE
     Indication: Product used for unknown indication
     Route: 065
     Dates: start: 20210613, end: 20210704
  40. DALTEPARIN [Concomitant]
     Active Substance: DALTEPARIN
     Indication: Product used for unknown indication
     Route: 065
     Dates: start: 20210326, end: 20210525
  41. TOCILIZUMAB [Concomitant]
     Active Substance: TOCILIZUMAB
     Indication: Product used for unknown indication
     Route: 065
     Dates: start: 20210707, end: 20210707
  42. TOCILIZUMAB [Concomitant]
     Active Substance: TOCILIZUMAB
     Route: 065
     Dates: start: 20210706, end: 20210707
  43. DIGOXIN [Concomitant]
     Active Substance: DIGOXIN
     Indication: Product used for unknown indication
     Route: 065
     Dates: start: 20210705, end: 20210706
  44. DEXAMETHASONE SODIUM PHOSPHATE [Concomitant]
     Active Substance: DEXAMETHASONE SODIUM PHOSPHATE
     Indication: Product used for unknown indication
     Route: 065
     Dates: start: 20210707, end: 20210710
  45. FILGRASTIM [Concomitant]
     Active Substance: FILGRASTIM
     Indication: Product used for unknown indication
     Route: 065
     Dates: start: 20210612, end: 20210706
  46. CHOLECALCIFEROL [Concomitant]
     Active Substance: CHOLECALCIFEROL
     Indication: Product used for unknown indication
     Route: 065
     Dates: start: 20200408, end: 20210704
  47. PREDNISONE [Concomitant]
     Active Substance: PREDNISONE
     Indication: Product used for unknown indication
     Route: 065
     Dates: start: 20210706, end: 20210709
  48. PREDNISONE [Concomitant]
     Active Substance: PREDNISONE
     Route: 065
     Dates: start: 20210713, end: 20210716
  49. FIBRINOGEN HUMAN [Concomitant]
     Active Substance: FIBRINOGEN HUMAN
     Indication: Product used for unknown indication
     Route: 065
     Dates: start: 20210707, end: 20210707

REACTIONS (5)
  - Ascites [Fatal]
  - Multiple organ dysfunction syndrome [Fatal]
  - Cytokine release syndrome [Recovered/Resolved]
  - Small intestinal perforation [Fatal]
  - Off label use [Unknown]

NARRATIVE: CASE EVENT DATE: 20210606
